FAERS Safety Report 18875532 (Version 1)
Quarter: 2021Q1

REPORT INFORMATION
  Report Type: Spontaneous
  Country: PL (occurrence: PL)
  Receive Date: 20210211
  Receipt Date: 20210211
  Transmission Date: 20210420
  Serious: Yes (Death)
  Sender: FDA-Public Use
  Company Number: PL-ABBVIE-19K-129-2924508-00

PATIENT
  Sex: Male

DRUGS (4)
  1. VENCLYXTO [Suspect]
     Active Substance: VENETOCLAX
     Indication: CHRONIC LYMPHOCYTIC LEUKAEMIA
     Route: 048
     Dates: start: 201905
  2. VENCLYXTO [Suspect]
     Active Substance: VENETOCLAX
     Route: 048
     Dates: end: 202006
  3. VENCLYXTO [Suspect]
     Active Substance: VENETOCLAX
     Route: 048
     Dates: start: 202012, end: 202012
  4. VENCLYXTO [Suspect]
     Active Substance: VENETOCLAX
     Route: 048
     Dates: start: 202006, end: 202011

REACTIONS (9)
  - Drug intolerance [Unknown]
  - Off label use [Unknown]
  - Thrombocytopenia [Unknown]
  - Chronic lymphocytic leukaemia [Fatal]
  - Blood test abnormal [Unknown]
  - Lymphocytosis [Fatal]
  - Lymphadenopathy [Fatal]
  - Infection [Fatal]
  - Anaemia [Fatal]

NARRATIVE: CASE EVENT DATE: 202006
